FAERS Safety Report 11429958 (Version 1)
Quarter: 2015Q3

REPORT INFORMATION
  Report Type: Spontaneous
  Country: US (occurrence: US)
  Receive Date: 20150828
  Receipt Date: 20150828
  Transmission Date: 20151125
  Serious: No
  Sender: FDA-Public Use
  Company Number: PHEH2015US010947

PATIENT
  Sex: Female

DRUGS (7)
  1. CITRACAL [Suspect]
     Active Substance: CALCIUM CITRATE
     Indication: PRODUCT USED FOR UNKNOWN INDICATION
     Route: 065
  2. RECLAST [Suspect]
     Active Substance: ZOLEDRONIC ACID
     Dosage: UNK, SECOND YEAR
     Route: 042
  3. RECLAST [Suspect]
     Active Substance: ZOLEDRONIC ACID
     Dosage: UNK, LAST YEAR
     Route: 042
  4. FOSAMAX [Suspect]
     Active Substance: ALENDRONATE SODIUM
     Indication: PRODUCT USED FOR UNKNOWN INDICATION
     Dosage: UNK, FOR 3 YEARS
     Route: 065
  5. RECLAST [Suspect]
     Active Substance: ZOLEDRONIC ACID
     Dosage: UNK, THIRD YEAR
     Route: 042
  6. RECLAST [Suspect]
     Active Substance: ZOLEDRONIC ACID
     Indication: PRODUCT USED FOR UNKNOWN INDICATION
     Dosage: UNK, FIRST YEAR
     Route: 042
  7. RECLAST [Suspect]
     Active Substance: ZOLEDRONIC ACID
     Dosage: UNK
     Route: 042

REACTIONS (7)
  - Nephrolithiasis [Unknown]
  - Gastrooesophageal reflux disease [Unknown]
  - Pruritus [Unknown]
  - Arthralgia [Unknown]
  - Oesophageal dilatation [Unknown]
  - Bone pain [Unknown]
  - Gastric pH decreased [Unknown]
